FAERS Safety Report 12992915 (Version 3)
Quarter: 2016Q4

REPORT INFORMATION
  Report Type: Spontaneous
  Country: US (occurrence: US)
  Receive Date: 20161202
  Receipt Date: 20161213
  Transmission Date: 20170207
  Serious: Yes (Other)
  Sender: FDA-Public Use
  Company Number: US-HORIZON-RAV-0263-2016

PATIENT
  Age: 12 Year
  Sex: Female

DRUGS (4)
  1. CYCLINEX [Concomitant]
  2. RAVICTI [Suspect]
     Active Substance: GLYCEROL PHENYLBUTYRATE
     Indication: ORNITHINE TRANSCARBAMOYLASE DEFICIENCY
     Dosage: 7 ML  DAILY (3 ML/AM, 2 ML AFTER SCHOOL, 2 ML BEFORE BEDTIME), INCREASED TO 4 ML FOR A COUPLE DAYS
     Dates: start: 20130909
  3. CITRULLINE [Concomitant]
     Active Substance: CITRULLINE
  4. LEVOCARNITINE. [Concomitant]
     Active Substance: LEVOCARNITINE

REACTIONS (5)
  - Hypophagia [Recovered/Resolved]
  - Drug administration error [Unknown]
  - Hyperammonaemia [Recovered/Resolved]
  - Catabolic state [Recovered/Resolved]
  - Abdominal pain upper [Recovered/Resolved]
